FAERS Safety Report 6493021-9 (Version None)
Quarter: 2009Q4

REPORT INFORMATION
  Report Type: 
  Country: None (occurrence: None)
  Receive Date: 20091214
  Receipt Date: 20091211
  Transmission Date: 20100525
  Serious: Yes (Disabling)
  Sender: FDA-Public Use
  Company Number: IT-ROCHE-665473

PATIENT
  Sex: Male

DRUGS (4)
  1. AVASTIN [Suspect]
     Indication: RECTAL CANCER
     Dosage: FREQUENCY: CYCLE,
     Route: 065
     Dates: start: 20090417, end: 20090801
  2. IRINOTECAN HCL [Concomitant]
     Dates: start: 20090313, end: 20091009
  3. FOLINIC ACID [Concomitant]
     Dates: start: 20090313, end: 20091009
  4. FLUOROURACIL [Concomitant]
     Dates: start: 20090313, end: 20091009

REACTIONS (3)
  - DYSPHAGIA [None]
  - OROPHARYNGEAL PAIN [None]
  - RADIATION NECROSIS [None]
